FAERS Safety Report 4316798-7 (Version None)
Quarter: 2004Q1

REPORT INFORMATION
  Report Type: 
  Country: None (occurrence: None)
  Receive Date: 20040311
  Receipt Date: 20040224
  Transmission Date: 20041129
  Serious: Yes (Hospitalization, Disabling)
  Sender: FDA-Public Use
  Company Number: 200401427

PATIENT
  Age: 41 Year
  Sex: Male

DRUGS (2)
  1. BOTOX PURIFIED NEUROTOXIN COMPLEX [Suspect]
     Indication: MIGRAINE
     Dates: start: 20030201
  2. MOTRIN [Concomitant]

REACTIONS (2)
  - ANEURYSM [None]
  - CEREBROVASCULAR ACCIDENT [None]
